FAERS Safety Report 13177516 (Version 1)
Quarter: 2017Q1

REPORT INFORMATION
  Report Type: Spontaneous
  Country: US (occurrence: US)
  Receive Date: 20170201
  Receipt Date: 20170201
  Transmission Date: 20170428
  Serious: No
  Sender: FDA-Public Use
  Company Number: US-EXELIXIS-CABO-16006392

PATIENT
  Age: 73 Year
  Sex: Male
  Weight: 58.96 kg

DRUGS (1)
  1. COMETRIQ [Suspect]
     Active Substance: CABOZANTINIB S-MALATE
     Indication: RENAL CELL CARCINOMA
     Dosage: 3 CAPSULES, QD
     Route: 048
     Dates: start: 201604, end: 20160512

REACTIONS (10)
  - Arthralgia [Unknown]
  - Decreased appetite [Unknown]
  - Nausea [Recovering/Resolving]
  - Off label use [Unknown]
  - Retching [Unknown]
  - Fatigue [Recovering/Resolving]
  - Vomiting [Unknown]
  - Productive cough [Unknown]
  - Weight decreased [Unknown]
  - Diarrhoea [Recovering/Resolving]

NARRATIVE: CASE EVENT DATE: 201604
